FAERS Safety Report 6212371-4 (Version None)
Quarter: 2009Q2

REPORT INFORMATION
  Report Type: 
  Country: None (occurrence: None)
  Receive Date: 20090529
  Receipt Date: 20090520
  Transmission Date: 20091009
  Serious: Yes (Hospitalization)
  Sender: FDA-Public Use
  Company Number: GXKR2009DE06114

PATIENT
  Age: 72 Year
  Sex: Male
  Weight: 65 kg

DRUGS (12)
  1. OMEPRAZOLE [Suspect]
     Indication: PROPHYLAXIS AGAINST GASTROINTESTINAL ULCER
     Dosage: 40 MG, QD, ORAL
     Route: 048
     Dates: start: 20070101
  2. CELLCEPT [Suspect]
     Indication: IMMUNOSUPPRESSION
     Dosage: 500 MG, BID, ORAL
     Route: 048
     Dates: start: 20070901
  3. NEORAL [Suspect]
     Indication: HEART TRANSPLANT
     Dosage: 1X100 MG+1X75 MG, ORAL
     Route: 048
     Dates: start: 20070901
  4. ASPIRIN [Concomitant]
  5. ATACAND [Concomitant]
  6. CARVEDILOL [Concomitant]
  7. DEKRISTOL (COLECALCIFEROL) [Concomitant]
  8. FUROSEMIDE [Concomitant]
  9. FLUVASTATIN SODIUM [Concomitant]
  10. MYDOCALM ^CHOAY LABS^ (TOLPERISONE HYDROCHLORIDE) [Concomitant]
  11. PALLADONE [Concomitant]
  12. XIPAMIDE (XIPAMIDE) [Concomitant]

REACTIONS (2)
  - BRONCHITIS [None]
  - DRUG INTERACTION [None]
